FAERS Safety Report 10974034 (Version 2)
Quarter: 2015Q2

REPORT INFORMATION
  Report Type: Spontaneous
  Country: JP (occurrence: JP)
  Receive Date: 20150401
  Receipt Date: 20150413
  Transmission Date: 20150821
  Serious: Yes (Hospitalization, Other)
  Sender: FDA-Public Use
  Company Number: JP-KOWA-15JP000081

PATIENT
  Age: 39 Year
  Sex: Male

DRUGS (3)
  1. URALYT                             /01779901/ [Concomitant]
     Indication: HYPERURICAEMIA
     Dosage: 2 DF, TID
     Route: 048
     Dates: start: 20141130, end: 20150221
  2. URINORM [Concomitant]
     Active Substance: BENZBROMARONE
     Indication: HYPERURICAEMIA
     Dosage: 25 MG, QD
     Route: 048
     Dates: start: 20141130, end: 20150221
  3. LIVALO [Suspect]
     Active Substance: PITAVASTATIN CALCIUM
     Indication: HYPERCHOLESTEROLAEMIA
     Dosage: 1 MG, QD
     Route: 048
     Dates: start: 20141130, end: 20150221

REACTIONS (3)
  - Disseminated intravascular coagulation [Recovered/Resolved]
  - White blood cell count decreased [Unknown]
  - Acute promyelocytic leukaemia [Unknown]

NARRATIVE: CASE EVENT DATE: 20150221
